FAERS Safety Report 25251746 (Version 1)
Quarter: 2025Q2

REPORT INFORMATION
  Report Type: Spontaneous
  Country: GB (occurrence: GB)
  Receive Date: 20250429
  Receipt Date: 20250429
  Transmission Date: 20250717
  Serious: Yes (Life-Threatening, Other)
  Sender: PFIZER
  Company Number: None

PATIENT
  Age: 68 Year
  Sex: Female
  Weight: 94 kg

DRUGS (11)
  1. AXITINIB [Suspect]
     Active Substance: AXITINIB
     Indication: Renal cell carcinoma
     Dosage: 2 MG, 1X/DAY
     Dates: start: 20240205
  2. APIXABAN [Concomitant]
     Active Substance: APIXABAN
     Indication: Pulmonary embolism
  3. LOSARTAN [Concomitant]
     Active Substance: LOSARTAN
  4. LORATADINE [Concomitant]
     Active Substance: LORATADINE
  5. ISOSORBIDE [Concomitant]
     Active Substance: ISOSORBIDE
  6. FENOFIBRATE [Concomitant]
     Active Substance: FENOFIBRATE
  7. BISOPROLOL [Concomitant]
     Active Substance: BISOPROLOL
  8. ATORVASTATIN [Concomitant]
     Active Substance: ATORVASTATIN
  9. LANSOPRAZOLE [Concomitant]
     Active Substance: LANSOPRAZOLE
  10. ANASTROZOLE [Concomitant]
     Active Substance: ANASTROZOLE
  11. NITROGLYCERIN [Concomitant]
     Active Substance: NITROGLYCERIN

REACTIONS (3)
  - Retinal occlusive vasculitis [Not Recovered/Not Resolved]
  - Eyelid cyst [Unknown]
  - Off label use [Unknown]

NARRATIVE: CASE EVENT DATE: 20240205
